FAERS Safety Report 5513707-X (Version None)
Quarter: 2007Q4

REPORT INFORMATION
  Report Type: 
  Country: None (occurrence: None)
  Receive Date: 20071113
  Receipt Date: 20071101
  Transmission Date: 20080405
  Serious: Yes (Hospitalization)
  Sender: FDA-Public Use
  Company Number: JP-NOVOPROD-249400

PATIENT
  Age: 59 Year
  Sex: Female
  Weight: 46 kg

DRUGS (7)
  1. NOVORAPID CHU FLEXPEN [Suspect]
     Indication: TYPE 1 DIABETES MELLITUS
     Dosage: 24 U, UNK
     Route: 058
     Dates: start: 20040528, end: 20040915
  2. NOVORAPID 30 MIX CHU FLEXPEN [Suspect]
     Indication: TYPE 1 DIABETES MELLITUS
     Dosage: 10-12
     Route: 058
     Dates: start: 20040611, end: 20040915
  3. NOVORAPID 30 MIX CHU FLEXPEN [Suspect]
     Dosage: 9+4+7
     Dates: start: 20050715
  4. PENFILL N CHU [Suspect]
     Indication: TYPE 1 DIABETES MELLITUS
     Route: 058
     Dates: start: 20040923, end: 20050715
  5. GLYBURIDE [Concomitant]
     Dosage: 5 UNK, UNK
     Dates: start: 20040915, end: 20050406
  6. AMITRIPTYLINE HYDROCHLORIDE [Concomitant]
  7. BASEN [Concomitant]
     Dosage: .6 MG, UNK
     Route: 048
     Dates: start: 20040915, end: 20050406

REACTIONS (7)
  - ABDOMINAL PAIN UPPER [None]
  - ALLODYNIA [None]
  - BURNING SENSATION [None]
  - CAROTID ARTERIOSCLEROSIS [None]
  - DIABETIC NEUROPATHY [None]
  - HYPOGLYCAEMIA [None]
  - NEURALGIA [None]
